FAERS Safety Report 9223721 (Version 1)
Quarter: 2013Q2

REPORT INFORMATION
  Report Type: Report from Study
  Country: CA (occurrence: CA)
  Receive Date: 20130410
  Receipt Date: 20130410
  Transmission Date: 20140414
  Serious: Yes (Hospitalization)
  Sender: FDA-Public Use
  Company Number: CA-ABBOTT-13P-028-1072689-00

PATIENT
  Sex: Male
  Weight: 72.64 kg

DRUGS (1)
  1. LUPRON DEPOT [Suspect]
     Indication: PROSTATE CANCER
     Dates: start: 2008

REACTIONS (3)
  - Malaise [Recovered/Resolved]
  - Sepsis [Recovered/Resolved]
  - Device occlusion [Recovered/Resolved]
